FAERS Safety Report 15122482 (Version 1)
Quarter: 2018Q3

REPORT INFORMATION
  Report Type: Spontaneous
  Country: US (occurrence: US)
  Receive Date: 20180709
  Receipt Date: 20180709
  Transmission Date: 20181010
  Serious: Yes (Hospitalization)
  Sender: FDA-Public Use
  Company Number: US-PFIZER INC-2018275931

PATIENT
  Age: 68 Year
  Sex: Male

DRUGS (1)
  1. LYRICA [Suspect]
     Active Substance: PREGABALIN
     Indication: DIABETIC NEUROPATHY
     Dosage: 50MG CAPSULE EVERY 12 HOURS
     Route: 048
     Dates: start: 20180620, end: 20180620

REACTIONS (3)
  - Confusional state [Unknown]
  - Incoherent [Unknown]
  - Asthenia [Unknown]

NARRATIVE: CASE EVENT DATE: 201806
